FAERS Safety Report 17011953 (Version 1)
Quarter: 2019Q4

REPORT INFORMATION
  Report Type: Spontaneous
  Country: MX (occurrence: MX)
  Receive Date: 20191108
  Receipt Date: 20191108
  Transmission Date: 20200122
  Serious: Yes (Other)
  Sender: FDA-Public Use
  Company Number: MX-RARE DISEASE THERAPEUTICS, INC.-2076649

PATIENT
  Age: 50 Year
  Sex: Male

DRUGS (1)
  1. ANAVIP [Suspect]
     Active Substance: PIT VIPER (CROTALINAE) IMMUNE GLOBULIN ANTIVENIN (EQUINE)
     Indication: SNAKE BITE
     Route: 042
     Dates: start: 20191021, end: 20191021

REACTIONS (7)
  - Intentional product misuse [None]
  - Nausea [Recovered/Resolved]
  - Dizziness [Recovered/Resolved]
  - Hypotension [Recovered/Resolved]
  - Tachycardia [Recovered/Resolved]
  - Pain in extremity [Unknown]
  - Shock [Recovered/Resolved]

NARRATIVE: CASE EVENT DATE: 20191021
